FAERS Safety Report 10618714 (Version 1)
Quarter: 2014Q4

REPORT INFORMATION
  Report Type: Spontaneous
  Country: NO (occurrence: NO)
  Receive Date: 20141202
  Receipt Date: 20141202
  Transmission Date: 20150529
  Serious: Yes (Hospitalization)
  Sender: FDA-Public Use
  Company Number: NO-ROCHE-1494861

PATIENT
  Age: 0 Year
  Sex: Male

DRUGS (2)
  1. CLONAZEPAM. [Suspect]
     Active Substance: CLONAZEPAM
     Indication: PRODUCT USED FOR UNKNOWN INDICATION
     Dosage: THE MOTHER NOT SUPPOSED TO USE CLONAZEPAM DURING PREGNANCY, BUT A BLOOD SAMPLE AUGUST 2014 WAS POSIT
     Route: 064
  2. TRAMADOL [Suspect]
     Active Substance: TRAMADOL
     Indication: PRODUCT USED FOR UNKNOWN INDICATION
     Route: 064
     Dates: start: 2014, end: 2014

REACTIONS (6)
  - Drug withdrawal syndrome neonatal [Recovering/Resolving]
  - Feeding disorder neonatal [Recovered/Resolved]
  - Oxygen saturation decreased [Recovered/Resolved]
  - Hypoglycaemia [Recovered/Resolved]
  - Respiratory rate increased [Recovered/Resolved]
  - Foetal exposure during pregnancy [Unknown]

NARRATIVE: CASE EVENT DATE: 2014
